FAERS Safety Report 10096063 (Version 2)
Quarter: 2014Q2

REPORT INFORMATION
  Report Type: Spontaneous
  Country: GB (occurrence: GB)
  Receive Date: 20140422
  Receipt Date: 20140527
  Transmission Date: 20141212
  Serious: Yes (Hospitalization)
  Sender: FDA-Public Use
  Company Number: GB-ASTRAZENECA-2014SE26047

PATIENT
  Sex: Male

DRUGS (3)
  1. SYMBICORT TH [Suspect]
     Indication: ASTHMA
     Dosage: 100/6 MCG, 1 PUFF, TWO TIMES A DAY
     Route: 055
     Dates: start: 2002
  2. SYMBICORT TH [Suspect]
     Indication: ASTHMA
     Dosage: 100/6 MCG, 1 PUFF, TWO TIMES A DAY
     Route: 055
     Dates: start: 20140110
  3. SALBUTAMOL [Concomitant]

REACTIONS (3)
  - Asthma [Unknown]
  - Intentional product misuse [Unknown]
  - Drug ineffective [Unknown]
